FAERS Safety Report 5225822-9 (Version None)
Quarter: 2007Q1

REPORT INFORMATION
  Report Type: 
  Country: None (occurrence: None)
  Receive Date: 20070130
  Receipt Date: 20070130
  Transmission Date: 20070707
  Serious: Yes (Hospitalization)
  Sender: FDA-Public Use
  Company Number: None

PATIENT
  Age: 23 Year
  Sex: Male

DRUGS (1)
  1. SEPTRA [Suspect]
     Indication: SKIN INFECTION
     Dosage: 1 DS TABLET   BID   PO
     Route: 048
     Dates: start: 20061216, end: 20061226

REACTIONS (3)
  - DRUG TOXICITY [None]
  - HEPATITIS [None]
  - RASH PRURITIC [None]
